FAERS Safety Report 26104837 (Version 1)
Quarter: 2025Q4

REPORT INFORMATION
  Report Type: Spontaneous
  Country: PK (occurrence: PK)
  Receive Date: 20251130
  Receipt Date: 20251130
  Transmission Date: 20260117
  Serious: No
  Sender: ALKEM
  Company Number: PK-ALKEM LABORATORIES LIMITED-PK-ALKEM-2025-06796

PATIENT
  Age: 8 Decade
  Sex: Male

DRUGS (3)
  1. COLCHICINE [Suspect]
     Active Substance: COLCHICINE
     Indication: Urticarial vasculitis
     Dosage: 0.6 MILLIGRAM, QD
     Route: 065
     Dates: start: 202104
  2. MYCOPHENOLATE MOFETIL [Suspect]
     Active Substance: MYCOPHENOLATE MOFETIL
     Indication: Urticarial vasculitis
     Dosage: 1000 MILLIGRAM, BID
     Route: 065
     Dates: start: 202203
  3. HYDROXYCHLOROQUINE [Concomitant]
     Active Substance: HYDROXYCHLOROQUINE
     Indication: Urticarial vasculitis
     Dosage: 400 MILLIGRAM, QD
     Route: 065
     Dates: start: 202106

REACTIONS (1)
  - Drug ineffective [Unknown]
